FAERS Safety Report 12810357 (Version 1)
Quarter: 2016Q4

REPORT INFORMATION
  Report Type: Spontaneous
  Country: US (occurrence: US)
  Receive Date: 20161004
  Receipt Date: 20161004
  Transmission Date: 20170207
  Serious: Yes (Life-Threatening, Hospitalization)
  Sender: FDA-Public Use
  Company Number: None

PATIENT
  Age: 79 Year
  Sex: Male
  Weight: 75.7 kg

DRUGS (1)
  1. PROCHLORPERAZINE. [Suspect]
     Active Substance: PROCHLORPERAZINE
     Indication: PAIN
     Route: 042
     Dates: start: 20160721, end: 20160721

REACTIONS (3)
  - Dystonia [None]
  - Confusional state [None]
  - Akathisia [None]

NARRATIVE: CASE EVENT DATE: 20160721
